FAERS Safety Report 9178064 (Version 1)
Quarter: 2012Q4

REPORT INFORMATION
  Report Type: 
  Country: DE (occurrence: DE)
  Receive Date: 20121019
  Receipt Date: 20121019
  Transmission Date: 20130627
  Serious: Yes (Other)
  Sender: FDA-Public Use
  Company Number: DE-RB-045701-12

PATIENT
  Age: 28 Year
  Sex: Male

DRUGS (1)
  1. SUBUTEX [Suspect]
     Indication: PRODUCT USED FOR UNKNOWN INDICATION
     Dosage: Unknown dosage details
     Route: 065

REACTIONS (3)
  - Homicide [Recovered/Resolved]
  - Drug diversion [Recovered/Resolved]
  - Intentional drug misuse [Unknown]
